FAERS Safety Report 5145934-8 (Version None)
Quarter: 2006Q4

REPORT INFORMATION
  Report Type: 
  Country: None (occurrence: None)
  Receive Date: 20061108
  Receipt Date: 20061102
  Transmission Date: 20070319
  Serious: Yes (Hospitalization)
  Sender: FDA-Public Use
  Company Number: 2006UW21446

PATIENT
  Age: 83 Year
  Sex: Female
  Weight: 48.5 kg

DRUGS (5)
  1. TENORMIN [Suspect]
     Indication: HEART RATE
     Dosage: 1/4 (50 MG) TABLET TID
     Route: 048
     Dates: start: 19900101
  2. LANOXIN [Concomitant]
  3. ATACAND [Concomitant]
     Route: 048
  4. BETOPTIC S [Concomitant]
  5. XALATAN [Concomitant]

REACTIONS (7)
  - ATRIAL FIBRILLATION [None]
  - CARDIAC DISORDER [None]
  - COLD SWEAT [None]
  - HEART RATE INCREASED [None]
  - INSOMNIA [None]
  - NIGHTMARE [None]
  - SUPRAVENTRICULAR TACHYCARDIA [None]
